FAERS Safety Report 8893379 (Version 1)
Quarter: 2012Q4

REPORT INFORMATION
  Report Type: 
  Country: US (occurrence: US)
  Receive Date: 20121107
  Receipt Date: 20121107
  Transmission Date: 20130627
  Serious: No
  Sender: FDA-Public Use
  Company Number: US-AMGEN-USASP2011051087

PATIENT
  Age: 48 Year
  Sex: Male
  Weight: 79.37 kg

DRUGS (2)
  1. ENBREL [Suspect]
     Indication: PRODUCT USED FOR UNKNOWN INDICATION
     Dosage: 50 mg, 2 times/wk
  2. FLEXERIL                           /00428402/ [Concomitant]
     Dosage: 10 mg, UNK

REACTIONS (1)
  - Therapeutic response decreased [Unknown]
